FAERS Safety Report 22868596 (Version 4)
Quarter: 2023Q4

REPORT INFORMATION
  Report Type: Report from Study
  Country: CN (occurrence: None)
  Receive Date: 20230825
  Receipt Date: 20231115
  Transmission Date: 20240110
  Serious: Yes (Hospitalization, Other)
  Sender: FDA-Public Use
  Company Number: 2023A179736

PATIENT
  Age: 926 Month
  Sex: Male

DRUGS (15)
  1. DURVALUMAB [Suspect]
     Active Substance: DURVALUMAB
     Indication: Non-small cell lung cancer
     Route: 042
     Dates: start: 20230614, end: 20230614
  2. DURVALUMAB [Suspect]
     Active Substance: DURVALUMAB
     Indication: Non-small cell lung cancer
     Route: 042
     Dates: start: 20230712, end: 20230803
  3. DURVALUMAB [Suspect]
     Active Substance: DURVALUMAB
     Indication: Non-small cell lung cancer
     Route: 042
     Dates: start: 20230814, end: 20230814
  4. SAVOLITINIB [Suspect]
     Active Substance: SAVOLITINIB
     Indication: Non-small cell lung cancer
     Route: 048
     Dates: start: 20230614, end: 20230803
  5. SAVOLITINIB [Suspect]
     Active Substance: SAVOLITINIB
     Indication: Non-small cell lung cancer
     Route: 048
     Dates: start: 20230814, end: 20230814
  6. FUDOSTEINE TABLETS [Concomitant]
     Indication: Non-small cell lung cancer
     Route: 048
     Dates: start: 20230517
  7. CALCIUM CARBONATE AND VITAMIND3 [Concomitant]
     Indication: Osteoporosis
     Route: 048
     Dates: start: 20230521, end: 20230610
  8. TRAMADOL HYDROCHLORIDE [Concomitant]
     Active Substance: TRAMADOL HYDROCHLORIDE
     Indication: Prophylaxis
     Route: 048
     Dates: start: 20230521
  9. TRAMADOL HYDROCHLORIDE [Concomitant]
     Active Substance: TRAMADOL HYDROCHLORIDE
     Indication: Chest pain
     Route: 048
     Dates: start: 20230521
  10. TRAMADOL HYDROCHLORIDE [Concomitant]
     Active Substance: TRAMADOL HYDROCHLORIDE
     Indication: Prophylaxis
     Route: 048
     Dates: start: 20230525
  11. TRAMADOL HYDROCHLORIDE [Concomitant]
     Active Substance: TRAMADOL HYDROCHLORIDE
     Indication: Chest pain
     Route: 048
     Dates: start: 20230525
  12. CEFTRIAXONE SODIUMFOR INJECTION [Concomitant]
     Indication: Disease complication
     Route: 042
     Dates: start: 20230517, end: 20230518
  13. ETAMSYLATE INJECTION [Concomitant]
     Indication: Surgery
     Route: 042
     Dates: start: 20230518, end: 20230523
  14. PIPERACILLIN SODIUMAND TAZOBACTAMSODIUM FOR INJECTION [Concomitant]
     Indication: Surgery
     Route: 042
     Dates: start: 20230518, end: 20230523
  15. METHYLCOBALAMIN [Concomitant]
     Active Substance: METHYLCOBALAMIN
     Indication: Prophylaxis
     Route: 048
     Dates: start: 20230525, end: 20230610

REACTIONS (1)
  - Drug-induced liver injury [Recovered/Resolved]

NARRATIVE: CASE EVENT DATE: 20230803
